FAERS Safety Report 8573994-0 (Version None)
Quarter: 2012Q2

REPORT INFORMATION
  Report Type: 
  Country: None (occurrence: None)
  Receive Date: 20120423
  Receipt Date: 20100504
  Transmission Date: 20120825
  Serious: Yes (Other)
  Sender: FDA-Public Use
  Company Number: PHHY2010US29138

PATIENT
  Age: 59 Year
  Sex: Male

DRUGS (4)
  1. METRONIDAZOLE [Concomitant]
  2. FLOMAX [Concomitant]
  3. EXJADE [Suspect]
     Indication: IRON OVERLOAD
     Dosage: 1000 MG, DAILY, ORAL : 1375 MG, DAILY
     Route: 048
     Dates: start: 20070701
  4. EXJADE [Suspect]
     Indication: IRON OVERLOAD
     Dosage: 1000 MG, DAILY, ORAL : 1375 MG, DAILY
     Route: 048
     Dates: start: 20080103, end: 20080901

REACTIONS (3)
  - SERUM FERRITIN INCREASED [None]
  - DIARRHOEA [None]
  - DEAFNESS [None]
